FAERS Safety Report 22378350 (Version 1)
Quarter: 2023Q2

REPORT INFORMATION
  Report Type: Spontaneous
  Country: US (occurrence: US)
  Receive Date: 20230529
  Receipt Date: 20230529
  Transmission Date: 20230722
  Serious: Yes (Hospitalization, Other)
  Sender: FDA-Public Use
  Company Number: US-JUBILANT PHARMA LTD-2023US000455

PATIENT
  Age: 39 Year
  Sex: Female

DRUGS (5)
  1. CLONIDINE [Suspect]
     Active Substance: CLONIDINE
     Indication: Anxiety
     Dosage: 0.2 MG, 3 TIMES PER DAY
  2. CLONIDINE [Suspect]
     Active Substance: CLONIDINE
     Dosage: 0.6 MG, ONCE PER DAY (AT BEDTIME)
  3. CLONIDINE [Suspect]
     Active Substance: CLONIDINE
     Dosage: UNK, TAPER BY REDUCING HER DOSE BY 50% EVERY THREE DAYS
  4. OLANZAPINE [Suspect]
     Active Substance: OLANZAPINE
     Indication: Bipolar disorder
     Dosage: 15 MG, ONCE PER DAY
  5. PROPRANOLOL [Concomitant]
     Active Substance: PROPRANOLOL HYDROCHLORIDE
     Indication: Product used for unknown indication
     Dosage: UNK,  UNK

REACTIONS (1)
  - Colitis ischaemic [Unknown]
